FAERS Safety Report 10099834 (Version 1)
Quarter: 2014Q2

REPORT INFORMATION
  Report Type: Spontaneous
  Country: US (occurrence: None)
  Receive Date: 20140422
  Receipt Date: 20140422
  Transmission Date: 20141212
  Serious: No
  Sender: FDA-Public Use
  Company Number: None

PATIENT
  Age: 45 Year
  Sex: Male

DRUGS (1)
  1. TOPAMAX [Suspect]
     Indication: BACK PAIN
     Dosage: 3 PILLS DAILY AT BEDTIME ONCE DAILY TAKEN BY MOUTH
     Route: 048

REACTIONS (6)
  - Depression [None]
  - Anxiety [None]
  - Tachyphrenia [None]
  - Irritability [None]
  - Insomnia [None]
  - Suicidal ideation [None]
